FAERS Safety Report 4581358-X (Version None)
Quarter: 2005Q1

REPORT INFORMATION
  Report Type: 
  Country: None (occurrence: None)
  Receive Date: 20050214
  Receipt Date: 20041005
  Transmission Date: 20050727
  Serious: No
  Sender: FDA-Public Use
  Company Number: US-GLAXOSMITHKLINE-A0528551A

PATIENT
  Sex: Female

DRUGS (3)
  1. LAMICTAL [Suspect]
     Indication: BIPOLAR DISORDER
     Dosage: 600MG UNKNOWN
     Route: 048
  2. NEURONTIN [Suspect]
     Indication: BIPOLAR II DISORDER
     Dosage: 1600MG UNKNOWN
     Route: 048
  3. DRAMAMINE [Concomitant]

REACTIONS (2)
  - DIZZINESS [None]
  - TREMOR [None]
